FAERS Safety Report 5020111-X (Version None)
Quarter: 2006Q2

REPORT INFORMATION
  Report Type: 
  Country: None (occurrence: None)
  Receive Date: 20060607
  Receipt Date: 20060301
  Transmission Date: 20061013
  Serious: Yes (Hospitalization)
  Sender: FDA-Public Use
  Company Number: US-ROCHE-438841

PATIENT
  Age: 26 Year
  Sex: Male
  Weight: 62.6 kg

DRUGS (2)
  1. ACCUTANE [Suspect]
     Indication: DRUG USE FOR UNKNOWN INDICATION
     Route: 048
     Dates: start: 19920709, end: 19920808
  2. ACCUTANE [Suspect]
     Route: 048
     Dates: start: 19930609, end: 19930809

REACTIONS (23)
  - ABDOMINAL ABSCESS [None]
  - ACQUIRED IMMUNODEFICIENCY SYNDROME [None]
  - ALOPECIA [None]
  - ANAEMIA [None]
  - BLOOD GLUCOSE DECREASED [None]
  - CARDIAC FAILURE CONGESTIVE [None]
  - COLITIS [None]
  - COLITIS ULCERATIVE [None]
  - CROHN'S DISEASE [None]
  - DUODENITIS [None]
  - ILEITIS [None]
  - INCISION SITE COMPLICATION [None]
  - INFLAMMATORY BOWEL DISEASE [None]
  - INTESTINAL HAEMORRHAGE [None]
  - LIVER FUNCTION TEST ABNORMAL [None]
  - MOUTH CYST [None]
  - OESOPHAGITIS [None]
  - ROSACEA [None]
  - SMALL INTESTINAL OBSTRUCTION [None]
  - STRESS [None]
  - SUICIDAL IDEATION [None]
  - VOMITING [None]
  - WOUND INFECTION [None]
